FAERS Safety Report 9735576 (Version 1)
Quarter: 2013Q4

REPORT INFORMATION
  Report Type: Spontaneous
  Country: US (occurrence: None)
  Receive Date: 20131205
  Receipt Date: 20131205
  Transmission Date: 20140711
  Serious: No
  Sender: FDA-Public Use
  Company Number: None

PATIENT
  Age: 30 Year
  Sex: Male
  Weight: 104.05 kg

DRUGS (3)
  1. ALFA 2 INTERFERON 2B (INTRON-A) [Suspect]
     Dates: end: 20130429
  2. ATIVAN [Concomitant]
  3. EFFEXOR [Concomitant]

REACTIONS (4)
  - Somnolence [None]
  - Faecal incontinence [None]
  - Urinary incontinence [None]
  - Abnormal behaviour [None]
